FAERS Safety Report 24867124 (Version 1)
Quarter: 2025Q1

REPORT INFORMATION
  Report Type: Spontaneous
  Country: DE (occurrence: DE)
  Receive Date: 20250121
  Receipt Date: 20250121
  Transmission Date: 20250409
  Serious: Yes (Other)
  Sender: TEVA
  Company Number: DE-TEVA-VS-3284899

PATIENT
  Sex: Male

DRUGS (3)
  1. OXYCODONE [Suspect]
     Active Substance: OXYCODONE
     Indication: Spinal pain
     Route: 065
  2. OXYCODONE [Suspect]
     Active Substance: OXYCODONE
     Indication: Spinal pain
     Route: 065
     Dates: end: 202103
  3. COSENTYX [Suspect]
     Active Substance: SECUKINUMAB
     Indication: Psoriatic arthropathy
     Dosage: 150 MG, QMO , THERAPY END DATE : ASKED BUT UNKNOWN
     Route: 065

REACTIONS (3)
  - Psoriatic arthropathy [Recovering/Resolving]
  - Therapeutic product effect decreased [Unknown]
  - Drug ineffective [Unknown]
